FAERS Safety Report 17974667 (Version 2)
Quarter: 2020Q3

REPORT INFORMATION
  Report Type: Spontaneous
  Country: ES (occurrence: ES)
  Receive Date: 20200702
  Receipt Date: 20200714
  Transmission Date: 20201103
  Serious: Yes (Other)
  Sender: FDA-Public Use
  Company Number: NVSC2020ES173500

PATIENT
  Age: 78 Year
  Sex: Male
  Weight: 75 kg

DRUGS (17)
  1. PROPOFOL. [Suspect]
     Active Substance: PROPOFOL
     Indication: ANALGESIC THERAPY
  2. AZITROMICINA [Suspect]
     Active Substance: AZITHROMYCIN DIHYDRATE
     Indication: CORONAVIRUS INFECTION
     Dosage: UNK (NO ESPECIFICADA? NOT SPECIFIED)
     Route: 065
     Dates: start: 2020
  3. OMNIC OCAS [Concomitant]
     Active Substance: TAMSULOSIN HYDROCHLORIDE
     Indication: PRODUCT USED FOR UNKNOWN INDICATION
     Dosage: UNK (PROLONGED?RELEASE TABLETS COATED WITH FILM; 30 TABLETS)
     Route: 065
  4. KALPRESS [Concomitant]
     Active Substance: VALSARTAN
     Indication: PRODUCT USED FOR UNKNOWN INDICATION
     Dosage: UNK (28 TABLETS (AL/PVC/PE/PVDC))
     Route: 065
  5. KALPRESS [Concomitant]
     Active Substance: VALSARTAN
     Route: 065
  6. CEFTRIAXONE. [Suspect]
     Active Substance: CEFTRIAXONE
     Dosage: NO ESPECIFICADA
     Route: 065
     Dates: start: 20200330, end: 20200402
  7. PROPOFOL. [Suspect]
     Active Substance: PROPOFOL
     Indication: CORONAVIRUS INFECTION
     Dosage: UNK
     Route: 065
     Dates: start: 20200328
  8. MIDAZOLAM. [Suspect]
     Active Substance: MIDAZOLAM
     Indication: ANALGESIC THERAPY
     Dosage: UNK
     Route: 065
     Dates: start: 20200328
  9. RILAST TURBOHALER [Concomitant]
     Indication: PRODUCT USED FOR UNKNOWN INDICATION
     Dosage: UNK (160 MG/ 4.5 MG; 1 INHALER OF 120 DOSES)
     Route: 055
  10. DOLQUINE [Suspect]
     Active Substance: HYDROXYCHLOROQUINE SULFATE
     Indication: CORONAVIRUS INFECTION
     Dosage: A COMPRESSED BREAKFAST AND DINNER
     Route: 048
     Dates: start: 20200328, end: 20200331
  11. CORTIC [Concomitant]
     Indication: CORONAVIRUS INFECTION
     Dosage: UNK (CORTICOIDES A DOSIS BAJAS? LOW DOSE CORTICOIDS)
     Route: 065
     Dates: start: 20200328
  12. MIDAZOLAM. [Suspect]
     Active Substance: MIDAZOLAM
     Indication: CORONAVIRUS INFECTION
  13. OMNIC OCAS [Concomitant]
     Active Substance: TAMSULOSIN HYDROCHLORIDE
     Dosage: UNK
     Route: 065
  14. MANIDON HTA [Concomitant]
     Active Substance: VERAPAMIL HYDROCHLORIDE
     Indication: PRODUCT USED FOR UNKNOWN INDICATION
     Dosage: UNK (30 TABLETS)
     Route: 065
  15. SIMVASTATIN. [Concomitant]
     Active Substance: SIMVASTATIN
     Indication: PRODUCT USED FOR UNKNOWN INDICATION
     Dosage: UNK (28 TABLETS)
     Route: 065
  16. CEFTRIAXONE. [Suspect]
     Active Substance: CEFTRIAXONE
     Indication: CORONAVIRUS INFECTION
     Dosage: UNK (NO ESPECIFICADA? NOT SPECIFIED)
     Route: 065
     Dates: start: 2020
  17. KALETRA [Suspect]
     Active Substance: LOPINAVIR\RITONAVIR
     Indication: CORONAVIRUS INFECTION
     Dosage: UNK
     Route: 048
     Dates: start: 20200330

REACTIONS (3)
  - Bradycardia [Recovered/Resolved]
  - Product use in unapproved indication [Unknown]
  - Long QT syndrome [Recovered/Resolved]

NARRATIVE: CASE EVENT DATE: 20200331
